FAERS Safety Report 8201827-0 (Version None)
Quarter: 2012Q1

REPORT INFORMATION
  Report Type: 
  Country: None (occurrence: None)
  Receive Date: 20120312
  Receipt Date: 20120227
  Transmission Date: 20120608
  Serious: No
  Sender: FDA-Public Use
  Company Number: US-ENDO PHARMACEUTICALS INC.-OPIR20120016

PATIENT
  Sex: Male

DRUGS (2)
  1. OPANA [Suspect]
     Indication: BREAKTHROUGH PAIN
     Dosage: 5 MG
     Dates: start: 20110101
  2. OPANA ER [Concomitant]
     Indication: PAIN
     Route: 048
     Dates: start: 20110101, end: 20120226

REACTIONS (1)
  - DRUG INEFFECTIVE [None]
